FAERS Safety Report 6321781-6 (Version None)
Quarter: 2009Q3

REPORT INFORMATION
  Report Type: 
  Country: None (occurrence: None)
  Receive Date: 20090824
  Receipt Date: 20090813
  Transmission Date: 20100115
  Serious: Yes (Other)
  Sender: FDA-Public Use
  Company Number: GB-ROCHE-650506

PATIENT
  Age: 36 Year
  Sex: Female
  Weight: 125.8 kg

DRUGS (5)
  1. XENICAL [Suspect]
     Indication: OBESITY
     Route: 048
     Dates: start: 20090319, end: 20090528
  2. BENDROFLUMETHIAZIDE [Concomitant]
     Indication: HYPERTENSION
     Dates: start: 20090423
  3. LABETALOL HCL [Concomitant]
     Indication: HYPERTENSION
     Route: 048
     Dates: start: 20080725, end: 20090401
  4. RAMIPRIL [Concomitant]
     Indication: HYPERTENSION
     Route: 048
     Dates: start: 20090326
  5. RAMIPRIL [Concomitant]
     Route: 048
     Dates: start: 20090409

REACTIONS (2)
  - NEPHROLITHIASIS [None]
  - PAIN [None]
